FAERS Safety Report 15338891 (Version 4)
Quarter: 2020Q1

REPORT INFORMATION
  Report Type: Spontaneous
  Country: US (occurrence: US)
  Receive Date: 20180831
  Receipt Date: 20200330
  Transmission Date: 20200409
  Serious: Yes (Other)
  Sender: FDA-Public Use
  Company Number: US-PFIZER INC-2018349881

PATIENT
  Age: 58 Year
  Sex: Male
  Weight: 113 kg

DRUGS (5)
  1. LYRICA [Suspect]
     Active Substance: PREGABALIN
     Indication: ARTHRALGIA
     Dosage: 75 MG, 3X/DAY
     Route: 048
  2. LYRICA [Suspect]
     Active Substance: PREGABALIN
     Indication: SPINAL OSTEOARTHRITIS
  3. LYRICA [Suspect]
     Active Substance: PREGABALIN
     Indication: MONONEUROPATHY
  4. LYRICA [Suspect]
     Active Substance: PREGABALIN
     Indication: ABDOMINAL MIGRAINE
  5. LYRICA [Suspect]
     Active Substance: PREGABALIN
     Indication: NEUROPATHY PERIPHERAL

REACTIONS (33)
  - Dry eye [Unknown]
  - Paraesthesia [Unknown]
  - Dizziness [Unknown]
  - Pain [Not Recovered/Not Resolved]
  - Thrombosis [Unknown]
  - Weight decreased [Unknown]
  - Sleep apnoea syndrome [Unknown]
  - Back injury [Unknown]
  - Anaemia [Unknown]
  - Fall [Recovering/Resolving]
  - Head injury [Recovering/Resolving]
  - Constipation [Recovering/Resolving]
  - Hyperhidrosis [Unknown]
  - Abdominal pain [Unknown]
  - Intervertebral disc disorder [Unknown]
  - Memory impairment [Unknown]
  - Gastrooesophageal reflux disease [Unknown]
  - Temperature intolerance [Unknown]
  - Neck pain [Unknown]
  - Joint stiffness [Unknown]
  - Drug ineffective [Unknown]
  - Dyspnoea [Unknown]
  - Nausea [Unknown]
  - Headache [Unknown]
  - Hypoaesthesia [Unknown]
  - Depression [Unknown]
  - Contusion [Unknown]
  - Weight increased [Unknown]
  - Appetite disorder [Unknown]
  - Insomnia [Unknown]
  - Myalgia [Unknown]
  - Anxiety [Unknown]
  - Fatigue [Unknown]
